FAERS Safety Report 6574179-X (Version None)
Quarter: 2010Q1

REPORT INFORMATION
  Report Type: 
  Country: None (occurrence: None)
  Receive Date: 20100208
  Receipt Date: 20100129
  Transmission Date: 20100710
  Serious: Yes (Other)
  Sender: FDA-Public Use
  Company Number: US-AMGEN-QUU389426

PATIENT
  Sex: Male

DRUGS (4)
  1. NPLATE [Suspect]
     Indication: IDIOPATHIC THROMBOCYTOPENIC PURPURA
     Dates: start: 20090126
  2. ATGAM [Concomitant]
     Dates: start: 20080801, end: 20090210
  3. PREDNISONE TAB [Concomitant]
     Dates: start: 20090106
  4. IMMU-G [Concomitant]
     Dates: start: 20040101, end: 20090206

REACTIONS (2)
  - EMBOLISM [None]
  - THROMBOSIS [None]
